FAERS Safety Report 5703442-7 (Version None)
Quarter: 2008Q2

REPORT INFORMATION
  Report Type: 
  Country: None (occurrence: None)
  Receive Date: 20080411
  Receipt Date: 20080331
  Transmission Date: 20081010
  Serious: Yes (Death, Other)
  Sender: FDA-Public Use
  Company Number: FR-PFIZER INC-2008029446

PATIENT
  Sex: Female
  Weight: 58 kg

DRUGS (1)
  1. CHAMPIX [Suspect]
     Route: 048
     Dates: start: 20071205, end: 20080120

REACTIONS (2)
  - ABORTION SPONTANEOUS INCOMPLETE [None]
  - INTRA-UTERINE DEATH [None]
